FAERS Safety Report 13494942 (Version 1)
Quarter: 2017Q2

REPORT INFORMATION
  Report Type: Spontaneous
  Country: GB (occurrence: GB)
  Receive Date: 20170428
  Receipt Date: 20170428
  Transmission Date: 20170830
  Serious: Yes (Other)
  Sender: FDA-Public Use
  Company Number: GB-TEVA-761885ACC

PATIENT
  Age: 84 Year
  Sex: Male
  Weight: 66.6 kg

DRUGS (4)
  1. LIDOCAINE. [Suspect]
     Active Substance: LIDOCAINE
     Indication: BIOPSY PROSTATE
     Route: 054
     Dates: start: 20170405
  2. STATIN [Concomitant]
     Active Substance: UNSPECIFIED INGREDIENT
  3. GENTAMICIN. [Suspect]
     Active Substance: GENTAMICIN
     Indication: PROPHYLAXIS
     Route: 042
     Dates: start: 20170405
  4. CIPROFLOXACIN. [Suspect]
     Active Substance: CIPROFLOXACIN
     Indication: PROPHYLAXIS
     Route: 048
     Dates: start: 20170405

REACTIONS (2)
  - Pruritus generalised [Not Recovered/Not Resolved]
  - Urticaria [Not Recovered/Not Resolved]

NARRATIVE: CASE EVENT DATE: 20170405
